FAERS Safety Report 8438032-9 (Version None)
Quarter: 2012Q2

REPORT INFORMATION
  Report Type: 
  Country: None (occurrence: None)
  Receive Date: 20120614
  Receipt Date: 20120604
  Transmission Date: 20120825
  Serious: Yes (Hospitalization)
  Sender: FDA-Public Use
  Company Number: US-JNJFOC-20120409923

PATIENT
  Sex: Male
  Weight: 71.6 kg

DRUGS (9)
  1. AMITRIPTYLINE HCL [Concomitant]
  2. TRAMADOL HCL [Concomitant]
  3. LEUCOVORIN CALCIUM [Concomitant]
  4. REMICADE [Suspect]
     Indication: CROHN'S DISEASE
     Route: 042
     Dates: start: 20110106, end: 20110301
  5. ANTIBIOTICS FOR IBD [Concomitant]
     Indication: INFLAMMATORY BOWEL DISEASE
  6. CIMZIA [Concomitant]
     Indication: INFLAMMATORY BOWEL DISEASE
     Dates: start: 20110303
  7. PREDNISONE TAB [Concomitant]
     Indication: INFLAMMATORY BOWEL DISEASE
  8. METHOTREXATE [Concomitant]
     Indication: INFLAMMATORY BOWEL DISEASE
  9. VITAMIN AND MINERAL PRENATAL SUPPLEMENT W/ FOLIC ACID CAP [Concomitant]

REACTIONS (1)
  - CROHN'S DISEASE [None]
